FAERS Safety Report 17469051 (Version 3)
Quarter: 2020Q2

REPORT INFORMATION
  Report Type: Spontaneous
  Country: US (occurrence: US)
  Receive Date: 20200227
  Receipt Date: 20200403
  Transmission Date: 20200713
  Serious: No
  Sender: FDA-Public Use
  Company Number: US-SA-2020SA049976

PATIENT
  Age: 58 Year
  Sex: Male

DRUGS (4)
  1. TOUJEO [Suspect]
     Active Substance: INSULIN GLARGINE
     Dosage: 62 IU, QD
     Route: 065
  2. VICTOZA [Concomitant]
     Active Substance: LIRAGLUTIDE
     Dosage: 1.8 IU, IN THE MORNING
     Route: 065
  3. TOUJEO [Suspect]
     Active Substance: INSULIN GLARGINE
     Indication: TYPE 1 DIABETES MELLITUS
     Dosage: 48 IU, BEFORE BEDTIME
     Route: 065
  4. HUMALOG [Concomitant]
     Active Substance: INSULIN LISPRO
     Dosage: 12-20 UNITS WITH EACH MEAL DEPENDING ON HIS BLOOD SUGAR
     Route: 065

REACTIONS (3)
  - Blood glucose increased [Unknown]
  - Intentional product use issue [Unknown]
  - Circumstance or information capable of leading to medication error [Unknown]
